FAERS Safety Report 15500764 (Version 1)
Quarter: 2018Q4

REPORT INFORMATION
  Report Type: Spontaneous
  Country: FR (occurrence: FR)
  Receive Date: 20181015
  Receipt Date: 20181015
  Transmission Date: 20190205
  Serious: Yes (Hospitalization)
  Sender: FDA-Public Use
  Company Number: FR-ANIPHARMA-2018-FR-000159

PATIENT
  Age: 70 Year
  Sex: Female
  Weight: 85 kg

DRUGS (10)
  1. OFLOCET [Suspect]
     Active Substance: OFLOXACIN
     Dosage: UNK
     Route: 048
     Dates: start: 20120601, end: 20120618
  2. LAROXYL [Concomitant]
     Active Substance: AMITRIPTYLINE HYDROCHLORIDE
     Dosage: UNK
     Route: 048
  3. JANUMET [Concomitant]
     Active Substance: METFORMIN HYDROCHLORIDE\SITAGLIPTIN PHOSPHATE
     Dosage: UNK
     Route: 048
  4. SIMVASTATIN. [Concomitant]
     Active Substance: SIMVASTATIN
     Dosage: UNK
     Route: 048
  5. IKOREL [Concomitant]
     Active Substance: NICORANDIL
     Dosage: UNK
     Route: 048
  6. HUMALOG [Concomitant]
     Active Substance: INSULIN LISPRO
     Dosage: UNK
     Route: 058
  7. SKENAN [Concomitant]
     Active Substance: MORPHINE SULFATE
     Dosage: UNK
     Route: 048
  8. ATACAND [Suspect]
     Active Substance: CANDESARTAN CILEXETIL
     Indication: OSTEITIS
     Dosage: UNK
     Route: 048
     Dates: start: 20120602, end: 20120618
  9. DALACINE - INTRAMUSCULAR [Suspect]
     Active Substance: CLINDAMYCIN PHOSPHATE
     Dosage: UNK
     Route: 048
     Dates: start: 20120601, end: 20120618
  10. LASILIX [Concomitant]
     Active Substance: FUROSEMIDE
     Dosage: UNK
     Route: 048

REACTIONS (1)
  - Drug reaction with eosinophilia and systemic symptoms [Recovered/Resolved]

NARRATIVE: CASE EVENT DATE: 20120603
